FAERS Safety Report 6753052-8 (Version None)
Quarter: 2010Q2

REPORT INFORMATION
  Report Type: 
  Country: None (occurrence: None)
  Receive Date: 20100603
  Receipt Date: 20100531
  Transmission Date: 20101027
  Serious: Yes (Death)
  Sender: FDA-Public Use
  Company Number: JP-JNJFOC-20100308578

PATIENT
  Sex: Male

DRUGS (17)
  1. RISPERDAL CONSTA [Suspect]
     Indication: SCHIZOAFFECTIVE DISORDER
     Route: 030
  2. RISPERIDONE [Suspect]
     Indication: SCHIZOAFFECTIVE DISORDER
     Route: 048
  3. ABILIFY [Concomitant]
     Indication: SCHIZOAFFECTIVE DISORDER
     Route: 048
  4. TOLEDOMIN [Concomitant]
     Indication: SCHIZOAFFECTIVE DISORDER
     Route: 048
  5. SENIRAN [Concomitant]
     Indication: SCHIZOAFFECTIVE DISORDER
     Route: 048
  6. PARULEON [Concomitant]
     Indication: SCHIZOAFFECTIVE DISORDER
     Route: 048
  7. BIBITTOACE [Concomitant]
     Indication: SCHIZOAFFECTIVE DISORDER
     Route: 048
  8. CONTOMIN [Concomitant]
     Indication: SCHIZOAFFECTIVE DISORDER
     Route: 048
  9. NITRAZEPAM [Concomitant]
     Indication: SCHIZOAFFECTIVE DISORDER
     Route: 048
  10. ESTAZOLAM [Concomitant]
     Indication: SCHIZOAFFECTIVE DISORDER
     Route: 048
  11. ETISEDAN [Concomitant]
     Indication: SCHIZOAFFECTIVE DISORDER
     Route: 048
  12. AKIRIDEN [Concomitant]
     Indication: PARKINSONISM
     Route: 048
  13. NICHIPHAGEN [Concomitant]
     Indication: HEPATIC FUNCTION ABNORMAL
     Route: 048
  14. BEZATATE [Concomitant]
     Indication: HYPERLIPIDAEMIA
     Route: 048
  15. PRAVASTATIN SODIUM [Concomitant]
     Indication: HYPERLIPIDAEMIA
     Route: 048
  16. KEBERA-G (GLYCYRRHIZIN/GLYCINE/CYSTEINE COMBINED DRUG) [Concomitant]
     Indication: HEPATIC FUNCTION ABNORMAL
     Route: 042
  17. NEOPERIDOL [Concomitant]
     Indication: SCHIZOAFFECTIVE DISORDER
     Route: 030

REACTIONS (1)
  - COMPLETED SUICIDE [None]
